FAERS Safety Report 6058735-3 (Version None)
Quarter: 2009Q1

REPORT INFORMATION
  Report Type: 
  Country: None (occurrence: None)
  Receive Date: 20090130
  Receipt Date: 20090122
  Transmission Date: 20090719
  Serious: Yes (Other)
  Sender: FDA-Public Use
  Company Number: GB-TEVA-184370ISR

PATIENT
  Sex: Female

DRUGS (3)
  1. RAMIPRIL [Suspect]
     Indication: RAYNAUD'S PHENOMENON
  2. METHYLPREDNISOLONE [Suspect]
     Indication: RAYNAUD'S PHENOMENON
  3. RITUXIMAB [Suspect]
     Indication: RAYNAUD'S PHENOMENON

REACTIONS (1)
  - RAYNAUD'S PHENOMENON [None]
